FAERS Safety Report 15627745 (Version 1)
Quarter: 2018Q4

REPORT INFORMATION
  Report Type: Spontaneous
  Country: US (occurrence: US)
  Receive Date: 20181116
  Receipt Date: 20181116
  Transmission Date: 20190205
  Serious: No
  Sender: FDA-Public Use
  Company Number: US-ASTRAZENECA-2001UW03151

PATIENT
  Age: 58 Year
  Sex: Male
  Weight: 97.5 kg

DRUGS (6)
  1. TOPROL XL [Suspect]
     Active Substance: METOPROLOL SUCCINATE
     Indication: HYPERTENSION
     Route: 048
     Dates: start: 200003
  2. CARDIZEM [Concomitant]
     Active Substance: DILTIAZEM HYDROCHLORIDE
  3. TRICOR [Concomitant]
     Active Substance: FENOFIBRATE
  4. NIASPAN [Concomitant]
     Active Substance: NIACIN
  5. COENYZME Q [Concomitant]
  6. BRILINTA [Suspect]
     Active Substance: TICAGRELOR
     Dosage: 60.0MG UNKNOWN
     Route: 048

REACTIONS (12)
  - Tongue discomfort [Unknown]
  - Tinnitus [Unknown]
  - Lip dry [Unknown]
  - Dysgeusia [Unknown]
  - Product use issue [Unknown]
  - Acne [Unknown]
  - Chapped lips [Unknown]
  - Rash [Unknown]
  - Pain [Unknown]
  - Oral discomfort [Unknown]
  - Eye pruritus [Unknown]
  - Pruritus [Unknown]

NARRATIVE: CASE EVENT DATE: 2000
